FAERS Safety Report 8093194-0 (Version None)
Quarter: 2012Q1

REPORT INFORMATION
  Report Type: 
  Country: None (occurrence: None)
  Receive Date: 20120131
  Receipt Date: 20120125
  Transmission Date: 20120608
  Serious: Yes (Other)
  Sender: FDA-Public Use
  Company Number: VE-ELI_LILLY_AND_COMPANY-VE201201008095

PATIENT
  Age: 80 Year
  Sex: Female

DRUGS (2)
  1. HUMALOG MIX 75/25 [Suspect]
     Indication: TYPE 2 DIABETES MELLITUS
     Dosage: 10 U, EACH MORNING
     Route: 058
     Dates: start: 20111007
  2. HUMALOG MIX 75/25 [Suspect]
     Dosage: 4 U, OTHER
     Route: 058
     Dates: start: 20111007

REACTIONS (2)
  - CEREBROVASCULAR ACCIDENT [None]
  - HYPOKINESIA [None]
